FAERS Safety Report 8548478-6 (Version None)
Quarter: 2012Q3

REPORT INFORMATION
  Report Type: 
  Country: None (occurrence: None)
  Receive Date: 20120730
  Receipt Date: 20120720
  Transmission Date: 20120928
  Serious: Yes (Other)
  Sender: FDA-Public Use
  Company Number: US-UCBSA-062218

PATIENT
  Age: 31 Year
  Sex: Female
  Weight: 61.2 kg

DRUGS (8)
  1. VITAMIN D [Concomitant]
     Route: 048
  2. CIMZIA [Suspect]
     Route: 058
     Dates: start: 20111112
  3. FERROUS SULFATE TAB [Concomitant]
     Route: 048
  4. CIMZIA [Suspect]
     Indication: CROHN'S DISEASE
     Route: 058
     Dates: start: 20110430, end: 20110101
  5. MERCAPTOPURINE [Concomitant]
     Route: 048
  6. MERCAPTOPURINE [Concomitant]
     Indication: CROHN'S DISEASE
     Dates: start: 20110601
  7. CALCIUM PLUS VITAMIN D [Concomitant]
     Indication: OSTEOPENIA
     Route: 048
     Dates: start: 20110701
  8. CRANBERRY FRUIT CONCENTRATE [Concomitant]
     Indication: ROUTINE HEALTH MAINTENANCE
     Route: 048
     Dates: start: 20110101

REACTIONS (2)
  - PREGNANCY [None]
  - ABORTION SPONTANEOUS [None]
